FAERS Safety Report 6209353-5 (Version None)
Quarter: 2009Q2

REPORT INFORMATION
  Report Type: 
  Country: None (occurrence: None)
  Receive Date: 20090529
  Receipt Date: 20090521
  Transmission Date: 20091009
  Serious: Yes (Hospitalization)
  Sender: FDA-Public Use
  Company Number: US-GENENTECH-283705

PATIENT
  Sex: Male
  Weight: 29 kg

DRUGS (4)
  1. SOMATROPIN [Suspect]
     Indication: SMALL FOR DATES BABY
     Dosage: 1.8 MG, UNK
     Route: 058
     Dates: start: 20070418
  2. MERCAPTOPURINE [Concomitant]
     Indication: DRUG USE FOR UNKNOWN INDICATION
     Dosage: 37.5 MG, QD
     Dates: start: 20070918
  3. REMICADE [Concomitant]
     Indication: DRUG USE FOR UNKNOWN INDICATION
     Dosage: UNK
     Route: 042
     Dates: start: 20081208
  4. PREVACID [Concomitant]
     Indication: DRUG USE FOR UNKNOWN INDICATION
     Dosage: 1 TABLET, QD

REACTIONS (2)
  - DYSPHAGIA [None]
  - OESOPHAGEAL STENOSIS [None]
